FAERS Safety Report 9769047 (Version 2)
Quarter: 2013Q4

REPORT INFORMATION
  Report Type: Spontaneous
  Country: AU (occurrence: AU)
  Receive Date: 20131218
  Receipt Date: 20131218
  Transmission Date: 20140711
  Serious: Yes (Other)
  Sender: FDA-Public Use
  Company Number: AU-ROCHE-1141053

PATIENT
  Age: 51 Year
  Sex: Male

DRUGS (7)
  1. PEGASYS [Suspect]
     Indication: HEPATITIS C
     Route: 058
     Dates: start: 20120608, end: 20120913
  2. RIBAVIRIN [Suspect]
     Indication: HEPATITIS C
     Dosage: 600 MG IN 2 DIVIDED DOSES DAILY.
     Route: 048
     Dates: start: 20120608, end: 20120913
  3. BOCEPREVIR [Suspect]
     Indication: HEPATITIS C
     Route: 048
     Dates: start: 20120704, end: 20120913
  4. DIAZEPAM [Concomitant]
     Indication: ANXIETY
     Route: 048
  5. DIPROSONE CREAM [Concomitant]
     Indication: PSORIASIS
     Route: 061
  6. PANADEINE FORTE [Concomitant]
     Indication: PAIN
     Route: 048
  7. PANADEINE FORTE [Concomitant]
     Indication: PAIN

REACTIONS (1)
  - Ascites [Recovered/Resolved]
